APPROVED DRUG PRODUCT: ADREVIEW
Active Ingredient: IOBENGUANE SULFATE I-123
Strength: 10mCi/5ML (2mCi/ML)
Dosage Form/Route: SOLUTION;INTRAVENOUS
Application: N022290 | Product #001
Applicant: GE HEALTHCARE
Approved: Sep 19, 2008 | RLD: Yes | RS: Yes | Type: RX